FAERS Safety Report 18439103 (Version 2)
Quarter: 2021Q3

REPORT INFORMATION
  Report Type: Spontaneous
  Country: AR (occurrence: AR)
  Receive Date: 20201028
  Receipt Date: 20210713
  Transmission Date: 20211014
  Serious: Yes (Disabling, Other)
  Sender: FDA-Public Use
  Company Number: AR-TAKEDA-2020TUS044196

PATIENT
  Sex: Male

DRUGS (7)
  1. ICLUSIG [Suspect]
     Active Substance: PONATINIB
     Indication: PHILADELPHIA POSITIVE ACUTE LYMPHOCYTIC LEUKAEMIA
     Dosage: 45 MILLIGRAM
     Route: 048
     Dates: start: 20200706, end: 20200725
  2. SULFAMETHOXAZOLE AND TRIMETHOPRIM [Concomitant]
     Active Substance: SULFAMETHOXAZOLE\TRIMETHOPRIM
     Dosage: UNK
     Route: 065
  3. OMEPRAZOLE. [Concomitant]
     Active Substance: OMEPRAZOLE
     Dosage: UNK
     Route: 065
  4. ACYCLOVIR. [Concomitant]
     Active Substance: ACYCLOVIR
     Dosage: UNK
     Route: 065
  5. ICLUSIG [Suspect]
     Active Substance: PONATINIB
     Dosage: UNK
     Route: 048
     Dates: start: 20200801, end: 20201005
  6. MAGNESIUM [Concomitant]
     Active Substance: MAGNESIUM
     Dosage: UNK
     Route: 065
  7. ICLUSIG [Suspect]
     Active Substance: PONATINIB
     Dosage: 15 MILLIGRAM
     Route: 048
     Dates: start: 202105

REACTIONS (1)
  - Chronic inflammatory demyelinating polyradiculoneuropathy [Unknown]
